FAERS Safety Report 16060391 (Version 1)
Quarter: 2019Q1

REPORT INFORMATION
  Report Type: Spontaneous
  Country: ES (occurrence: ES)
  Receive Date: 20190312
  Receipt Date: 20190312
  Transmission Date: 20190418
  Serious: Yes (Life-Threatening, Other)
  Sender: FDA-Public Use
  Company Number: ES-AUROBINDO-AUR-APL-2019-012225

PATIENT

DRUGS (6)
  1. RAMIPRIL. [Suspect]
     Active Substance: RAMIPRIL
     Indication: ANEURYSM
     Dosage: 5 MILLIGRAM, DAILY
     Route: 048
     Dates: start: 20160601
  2. BISOPROLOL [Suspect]
     Active Substance: BISOPROLOL
     Indication: ANEURYSM
     Dosage: 2.5 MILLIGRAM, DAILY
     Route: 048
     Dates: start: 20160601
  3. OMEPRAZOLE. [Suspect]
     Active Substance: OMEPRAZOLE
     Indication: PROPHYLAXIS AGAINST GASTROINTESTINAL ULCER
     Dosage: 20 MILLIGRAM, DAILY
     Route: 048
     Dates: start: 20160101
  4. BRILIQUE [Suspect]
     Active Substance: TICAGRELOR
     Indication: ANEURYSM
     Dosage: 90 MILLIGRAM, TWO TIMES A DAY
     Route: 048
     Dates: start: 20160701, end: 20181201
  5. ATORVASTATIN [Suspect]
     Active Substance: ATORVASTATIN
     Indication: ANEURYSM
     Dosage: 80 MILLIGRAM, DAILY
     Route: 048
     Dates: start: 20160601
  6. ADIRO [Suspect]
     Active Substance: ASPIRIN
     Indication: PLATELET AGGREGATION
     Dosage: 100 MILLIGRAM, DAILY
     Route: 048
     Dates: start: 20160101

REACTIONS (1)
  - Prostate cancer [Not Recovered/Not Resolved]

NARRATIVE: CASE EVENT DATE: 20180601
